FAERS Safety Report 4972915-7 (Version None)
Quarter: 2006Q2

REPORT INFORMATION
  Report Type: 
  Country: None (occurrence: None)
  Receive Date: 20060410
  Receipt Date: 20060403
  Transmission Date: 20061013
  Serious: Yes (Hospitalization)
  Sender: FDA-Public Use
  Company Number: 2006BI003021

PATIENT
  Age: 57 Year
  Sex: Male

DRUGS (6)
  1. AVONEX [Suspect]
     Indication: MULTIPLE SCLEROSIS
     Dosage: 30 UG; QW; IM
     Route: 030
     Dates: start: 20020101, end: 20030101
  2. AVONEX [Suspect]
     Indication: MULTIPLE SCLEROSIS
     Dosage: 30 UG; QW; IM
     Route: 030
     Dates: start: 20030101
  3. TRILEPTAL [Concomitant]
  4. ASPIRIN [Concomitant]
  5. PROVIGIL [Concomitant]
  6. PRINZIDE [Concomitant]

REACTIONS (2)
  - ANGINA PECTORIS [None]
  - DYSPNOEA [None]
